FAERS Safety Report 9217356 (Version 2)
Quarter: 2013Q2

REPORT INFORMATION
  Report Type: Spontaneous
  Country: US (occurrence: US)
  Receive Date: 20130408
  Receipt Date: 20130515
  Transmission Date: 20140414
  Serious: Yes (Hospitalization, Other)
  Sender: FDA-Public Use
  Company Number: US-TARO-2013P1003939

PATIENT
  Age: 65 Year
  Sex: Male
  Weight: 68.04 kg

DRUGS (3)
  1. PHENYTOIN SODIUM EXTENDED CAPSULES USP 100MG [Suspect]
     Route: 048
     Dates: start: 201303, end: 20130315
  2. ALCOHOL [Suspect]
  3. METOPROLOL [Concomitant]

REACTIONS (9)
  - Hypersensitivity [Recovering/Resolving]
  - Blister [Recovering/Resolving]
  - Product substitution issue [Recovered/Resolved]
  - Pancreatitis [Unknown]
  - Cholelithiasis [Unknown]
  - Encephalomalacia [Unknown]
  - Anxiety [Unknown]
  - Dermatitis [Recovering/Resolving]
  - Presyncope [Recovered/Resolved]
